FAERS Safety Report 11796063 (Version 1)
Quarter: 2015Q4

REPORT INFORMATION
  Report Type: Spontaneous
  Country: US (occurrence: US)
  Receive Date: 20151203
  Receipt Date: 20151203
  Transmission Date: 20160305
  Serious: No
  Sender: FDA-Public Use
  Company Number: US-GLENMARK PHARMACEUTICALS INC, USA.-2014GMK012097

PATIENT
  Age: 61 Year
  Sex: Male

DRUGS (2)
  1. PRAMIPEXOLE DIHYDROCHLORIDE. [Suspect]
     Active Substance: PRAMIPEXOLE DIHYDROCHLORIDE
     Dosage: 2 DF, OD
     Route: 048
     Dates: start: 201410
  2. PRAMIPEXOLE DIHYDROCHLORIDE. [Suspect]
     Active Substance: PRAMIPEXOLE DIHYDROCHLORIDE
     Dosage: UNK

REACTIONS (5)
  - Incorrect dose administered [Unknown]
  - Product use issue [Unknown]
  - Product substitution issue [Unknown]
  - Product substitution issue [None]
  - Drug ineffective [Unknown]

NARRATIVE: CASE EVENT DATE: 201410
